FAERS Safety Report 4315753-0 (Version None)
Quarter: 2004Q1

REPORT INFORMATION
  Report Type: 
  Country: None (occurrence: None)
  Receive Date: 20040311
  Receipt Date: 20040303
  Transmission Date: 20041129
  Serious: Yes (Hospitalization)
  Sender: FDA-Public Use
  Company Number: IL-BRISTOL-MYERS SQUIBB COMPANY-12523866

PATIENT
  Age: 57 Year
  Sex: Male
  Weight: 94 kg

DRUGS (6)
  1. COUMADIN [Suspect]
     Dates: start: 20040209
  2. ATENOLOL [Suspect]
  3. TEDISAMIL [Suspect]
  4. PROPAFENONE HYDROCHLORIDE [Suspect]
  5. MIDAZOLAM HCL [Suspect]
  6. PROPOFOL [Suspect]

REACTIONS (2)
  - HYPOTENSION [None]
  - RENAL FAILURE [None]
